FAERS Safety Report 24340262 (Version 1)
Quarter: 2024Q3

REPORT INFORMATION
  Report Type: Spontaneous
  Country: FR (occurrence: FR)
  Receive Date: 20240919
  Receipt Date: 20240919
  Transmission Date: 20241016
  Serious: Yes (Other)
  Sender: TEVA
  Company Number: None

PATIENT
  Age: 59 Year
  Sex: Female
  Weight: 65 kg

DRUGS (2)
  1. PACLITAXEL [Suspect]
     Active Substance: PACLITAXEL
     Indication: Ovarian cancer
     Dosage: TIME INTERVAL: CYCLICAL: 282 MG X 1/ CYCLE
     Route: 042
     Dates: start: 20240311, end: 20240530
  2. CARBOPLATIN [Suspect]
     Active Substance: CARBOPLATIN
     Indication: Ovarian cancer
     Dosage: TIME INTERVAL: CYCLICAL: 710 MG X 1/CYCLE
     Route: 042
     Dates: start: 20240311, end: 20240530

REACTIONS (2)
  - Pain in extremity [Not Recovered/Not Resolved]
  - Condition aggravated [Not Recovered/Not Resolved]

NARRATIVE: CASE EVENT DATE: 20240312
